FAERS Safety Report 7517896-7 (Version None)
Quarter: 2011Q2

REPORT INFORMATION
  Report Type: 
  Country: None (occurrence: None)
  Receive Date: 20110527
  Receipt Date: 20110527
  Transmission Date: 20111010
  Serious: Yes (Life-Threatening, Other)
  Sender: FDA-Public Use
  Company Number: None

PATIENT
  Age: 24 Year
  Sex: Male
  Weight: 90.7194 kg

DRUGS (1)
  1. AMBIEN [Suspect]
     Indication: INSOMNIA
     Dosage: 10MG 1+ 1/2 BID PO
     Route: 048
     Dates: start: 20110401, end: 20110523

REACTIONS (4)
  - MEMORY IMPAIRMENT [None]
  - SOMNAMBULISM [None]
  - ABNORMAL SLEEP-RELATED EVENT [None]
  - SELF INJURIOUS BEHAVIOUR [None]
